FAERS Safety Report 15328068 (Version 2)
Quarter: 2019Q1

REPORT INFORMATION
  Report Type: Spontaneous
  Country: GB (occurrence: GB)
  Receive Date: 20180828
  Receipt Date: 20190227
  Transmission Date: 20190417
  Serious: Yes (Life-Threatening, Other)
  Sender: FDA-Public Use
  Company Number: PHHY2018GB082173

PATIENT
  Age: 62 Year
  Sex: Female
  Weight: 76 kg

DRUGS (9)
  1. TERBINAFINE. [Suspect]
     Active Substance: TERBINAFINE
     Indication: SKIN CANDIDA
     Dosage: 1 DF, QD
     Route: 061
     Dates: start: 20031129, end: 20031205
  2. METFORMIN [Concomitant]
     Active Substance: METFORMIN HYDROCHLORIDE
     Indication: TYPE 2 DIABETES MELLITUS
     Dosage: 500 MG, BID
     Route: 048
  3. SALBUTAMOL [Concomitant]
     Active Substance: ALBUTEROL
     Indication: CHRONIC OBSTRUCTIVE PULMONARY DISEASE
     Dosage: UNK
     Route: 055
  4. PARACETAMOL [Concomitant]
     Active Substance: ACETAMINOPHEN
     Dosage: UNK, PRN
     Route: 048
  5. BECOTIDE [Concomitant]
     Active Substance: BECLOMETHASONE DIPROPIONATE
     Indication: CHRONIC OBSTRUCTIVE PULMONARY DISEASE
     Dosage: 200 ?G, UNK
     Route: 055
  6. TERBINAFINE. [Suspect]
     Active Substance: TERBINAFINE
     Indication: INTERTRIGO
     Dosage: 250 MG, QD
     Route: 048
     Dates: start: 20031205, end: 20031206
  7. LISINOPRIL. [Concomitant]
     Active Substance: LISINOPRIL
     Indication: HYPERTENSION
     Dosage: 20 MG, QD
     Route: 048
  8. PARACETAMOL [Concomitant]
     Active Substance: ACETAMINOPHEN
     Indication: PRODUCT USED FOR UNKNOWN INDICATION
     Dosage: 1-2 TABS
     Route: 048
  9. SIMVASTATIN. [Concomitant]
     Active Substance: SIMVASTATIN
     Indication: HYPERCHOLESTEROLAEMIA
     Dosage: 10 MG, QD
     Route: 048

REACTIONS (12)
  - Blister [Recovered/Resolved]
  - Lower respiratory tract infection [Recovered/Resolved]
  - Oedema [Recovered/Resolved]
  - Acute generalised exanthematous pustulosis [Recovered/Resolved]
  - Mucosal erosion [Recovered/Resolved]
  - Dermatitis bullous [Recovered/Resolved]
  - Blood potassium increased [Recovered/Resolved]
  - Erythema [Recovered/Resolved]
  - Acute generalised exanthematous pustulosis [Unknown]
  - Acute kidney injury [Recovered/Resolved]
  - Vulvar erosion [Recovered/Resolved]
  - Rash pustular [Recovered/Resolved]

NARRATIVE: CASE EVENT DATE: 20031206
